FAERS Safety Report 7893379-X (Version None)
Quarter: 2011Q4

REPORT INFORMATION
  Report Type: 
  Country: None (occurrence: None)
  Receive Date: 20111104
  Receipt Date: 20111028
  Transmission Date: 20120403
  Serious: Yes (Other)
  Sender: FDA-Public Use
  Company Number: US-ROCHE-1008604

PATIENT
  Sex: Male
  Weight: 77.634 kg

DRUGS (4)
  1. ASPIRIN [Concomitant]
     Indication: BLOOD THROMBIN
  2. OXYCODONE HCL [Concomitant]
     Indication: PAIN
     Route: 048
  3. BENAZEPRIL HYDROCHLORIDE [Concomitant]
     Indication: BLOOD PRESSURE
  4. ZELBORAF [Suspect]
     Indication: METASTATIC MALIGNANT MELANOMA
     Route: 048
     Dates: start: 20110922

REACTIONS (1)
  - CONFUSIONAL STATE [None]
